FAERS Safety Report 9181802 (Version 2)
Quarter: 2013Q2

REPORT INFORMATION
  Report Type: Spontaneous
  Country: JP (occurrence: JP)
  Receive Date: 20130322
  Receipt Date: 20130417
  Transmission Date: 20140414
  Serious: Yes (Hospitalization)
  Sender: FDA-Public Use
  Company Number: JP-SANOFI-AVENTIS-2013SA027879

PATIENT
  Age: 74 Year
  Sex: Male

DRUGS (4)
  1. LANTUS SOLOSTAR [Suspect]
     Indication: PRODUCT USED FOR UNKNOWN INDICATION
     Dosage: DOSE:8 UNIT(S)
     Route: 058
     Dates: start: 200908
  2. SOLOSTAR [Suspect]
     Indication: DEVICE THERAPY
     Route: 065
  3. APIDRA SOLOSTAR [Suspect]
     Indication: PRODUCT USED FOR UNKNOWN INDICATION
     Dosage: DOSE:8 UNIT(S)
     Route: 058
     Dates: start: 201104
  4. SOLOSTAR [Suspect]
     Indication: DEVICE THERAPY
     Route: 065

REACTIONS (11)
  - Anti-insulin antibody positive [Recovering/Resolving]
  - Hyperglycaemia [Recovering/Resolving]
  - Hypoglycaemia [Recovered/Resolved]
  - Allergic granulomatous angiitis [Unknown]
  - Malaise [Unknown]
  - Pyrexia [Unknown]
  - Cough [Unknown]
  - Haemoptysis [Unknown]
  - Oedema [Unknown]
  - Eosinophil count increased [Unknown]
  - Rash [Unknown]
